FAERS Safety Report 8008279-4 (Version None)
Quarter: 2011Q4

REPORT INFORMATION
  Report Type: 
  Country: None (occurrence: None)
  Receive Date: 20111227
  Receipt Date: 20111221
  Transmission Date: 20120403
  Serious: Yes (Death, Other)
  Sender: FDA-Public Use
  Company Number: CN-ASTRAZENECA-2011SE76312

PATIENT
  Age: 20 Year
  Sex: Female

DRUGS (2)
  1. PROPOFOL [Suspect]
     Indication: ANAESTHESIA PROCEDURE
     Dosage: 100 MG
     Route: 042
  2. FENTANYL [Suspect]
     Indication: ANAESTHESIA PROCEDURE
     Dosage: 50 UG

REACTIONS (4)
  - DEATH [None]
  - CYANOSIS [None]
  - ANAESTHETIC COMPLICATION [None]
  - CARDIO-RESPIRATORY ARREST [None]
